FAERS Safety Report 5199048-1 (Version None)
Quarter: 2007Q1

REPORT INFORMATION
  Report Type: 
  Country: None (occurrence: None)
  Receive Date: 20070104
  Receipt Date: 20061226
  Transmission Date: 20070707
  Serious: Yes (Hospitalization)
  Sender: FDA-Public Use
  Company Number: FR-PFIZER INC-2007000208

PATIENT
  Sex: Male

DRUGS (6)
  1. FELDENE [Suspect]
     Indication: BACK PAIN
     Route: 030
     Dates: start: 20061026, end: 20061102
  2. ACETAMINOPHEN W/ PROPOXYPHENE HCL [Suspect]
     Indication: BACK PAIN
     Route: 048
     Dates: start: 20061026, end: 20061102
  3. DITIAZEM [Concomitant]
  4. MODOPAR [Concomitant]
     Route: 048
  5. ASPIRIN [Concomitant]
  6. PERINDOPRIL ERBUMINE [Concomitant]

REACTIONS (2)
  - DISORIENTATION [None]
  - HALLUCINATION [None]
